FAERS Safety Report 13038642 (Version 1)
Quarter: 2016Q4

REPORT INFORMATION
  Report Type: Report from Study
  Country: None (occurrence: CA)
  Receive Date: 20161219
  Receipt Date: 20161219
  Transmission Date: 20170207
  Serious: Yes (Other)
  Sender: FDA-Public Use
  Company Number: CA-ABBVIE-16K-028-1806917-00

PATIENT
  Age: 38 Year
  Sex: Female

DRUGS (1)
  1. HUMIRA [Suspect]
     Active Substance: ADALIMUMAB
     Indication: UVEITIS
     Route: 058
     Dates: start: 20160827, end: 2016

REACTIONS (5)
  - Procedural headache [Not Recovered/Not Resolved]
  - Post procedural swelling [Not Recovered/Not Resolved]
  - Cataract [Recovering/Resolving]
  - Procedural pain [Not Recovered/Not Resolved]
  - Retinal detachment [Recovering/Resolving]

NARRATIVE: CASE EVENT DATE: 20161209
